FAERS Safety Report 7720386-X (Version None)
Quarter: 2011Q3

REPORT INFORMATION
  Report Type: 
  Country: None (occurrence: None)
  Receive Date: 20110830
  Receipt Date: 20110830
  Transmission Date: 20111222
  Serious: No
  Sender: FDA-Public Use
  Company Number: None

PATIENT
  Age: 47 Year
  Sex: Female

DRUGS (1)
  1. PRAVASTATIN [Suspect]
     Dates: start: 20070918, end: 20091019

REACTIONS (5)
  - ENCEPHALOPATHY [None]
  - LIVER INJURY [None]
  - ASCITES [None]
  - ACUTE HEPATIC FAILURE [None]
  - AUTOIMMUNE HEPATITIS [None]
